FAERS Safety Report 5207509-1 (Version None)
Quarter: 2007Q1

REPORT INFORMATION
  Report Type: 
  Country: None (occurrence: None)
  Receive Date: 20070112
  Receipt Date: 20070102
  Transmission Date: 20070707
  Serious: Yes (Hospitalization)
  Sender: FDA-Public Use
  Company Number: FR-BRISTOL-MYERS SQUIBB COMPANY-13635164

PATIENT
  Sex: Female

DRUGS (5)
  1. ZERIT [Suspect]
     Route: 048
     Dates: start: 19990219
  2. VIRACEPT [Suspect]
     Indication: HIV INFECTION
     Route: 048
     Dates: start: 19990219
  3. RETROVIR [Suspect]
     Indication: HIV TEST POSITIVE
     Route: 042
     Dates: start: 19990219
  4. EPIVIR [Suspect]
     Route: 048
     Dates: start: 19990219
  5. METHADONE HCL [Concomitant]

REACTIONS (5)
  - ANAEMIA [None]
  - BLOOD LACTIC ACID INCREASED [None]
  - HYPERTRIGLYCERIDAEMIA [None]
  - PREGNANCY [None]
  - THROMBOCYTHAEMIA [None]
